FAERS Safety Report 5780930-9 (Version None)
Quarter: 2008Q2

REPORT INFORMATION
  Report Type: 
  Country: None (occurrence: None)
  Receive Date: 20080620
  Receipt Date: 20080612
  Transmission Date: 20081010
  Serious: Yes (Disabling)
  Sender: FDA-Public Use
  Company Number: FR-ABBOTT-08P-056-0437708-00

PATIENT
  Sex: Female
  Weight: 58 kg

DRUGS (3)
  1. FENOFIBRATE [Suspect]
     Indication: HYPERCHOLESTEROLAEMIA
     Route: 048
     Dates: start: 20000101
  2. FENOFIBRATE [Suspect]
     Route: 048
     Dates: start: 20070501, end: 20070601
  3. FENOFIBRATE [Suspect]
     Route: 048
     Dates: start: 20070101, end: 20080201

REACTIONS (6)
  - ABDOMINAL PAIN [None]
  - BLOOD CREATINE PHOSPHOKINASE INCREASED [None]
  - GAIT DISTURBANCE [None]
  - MUSCLE SPASMS [None]
  - MUSCULAR WEAKNESS [None]
  - PERIPHERAL SENSORY NEUROPATHY [None]
